FAERS Safety Report 4929689-5 (Version None)
Quarter: 2006Q1

REPORT INFORMATION
  Report Type: 
  Country: None (occurrence: None)
  Receive Date: 20060224
  Receipt Date: 20060209
  Transmission Date: 20060701
  Serious: Yes (Hospitalization)
  Sender: FDA-Public Use
  Company Number: 2006S1001212

PATIENT
  Age: 48 Year
  Sex: Female
  Weight: 69.4003 kg

DRUGS (2)
  1. FENTANYL TRANSDERMAL SYSTEM [Suspect]
     Indication: PAIN IN EXTREMITY
     Dosage: 25 UG/HR;X1;TRANS
     Dates: start: 20051223, end: 20051226
  2. ROSIGLITAZONE MALEATE [Concomitant]

REACTIONS (4)
  - DEHYDRATION [None]
  - LEG AMPUTATION [None]
  - NAUSEA [None]
  - VOMITING [None]
